FAERS Safety Report 19250650 (Version 4)
Quarter: 2021Q4

REPORT INFORMATION
  Report Type: Report from Study
  Country: US (occurrence: US)
  Receive Date: 20210512
  Receipt Date: 20211210
  Transmission Date: 20220303
  Serious: Yes (Hospitalization, Other)
  Sender: FDA-Public Use
  Company Number: US-NOVARTISTESTPH-NVSC2021US099577

PATIENT
  Age: 76 Year
  Sex: Female
  Weight: 76.8 kg

DRUGS (39)
  1. VOTRIENT [Suspect]
     Active Substance: PAZOPANIB HYDROCHLORIDE
     Indication: Renal cancer
     Dosage: 400 MG, QD
     Route: 048
     Dates: end: 20210420
  2. VOTRIENT [Suspect]
     Active Substance: PAZOPANIB HYDROCHLORIDE
     Dosage: 600 MG, QD
     Route: 048
     Dates: end: 20210427
  3. VOTRIENT [Suspect]
     Active Substance: PAZOPANIB HYDROCHLORIDE
     Dosage: 600 MG (3 TABS), QD
     Route: 048
     Dates: end: 20210427
  4. CABOZANTINIB [Concomitant]
     Active Substance: CABOZANTINIB
     Indication: Product used for unknown indication
     Dosage: UNK
     Route: 065
     Dates: start: 20210504
  5. KEYTRUDA [Concomitant]
     Active Substance: PEMBROLIZUMAB
     Indication: Product used for unknown indication
     Dosage: UNK
     Route: 065
     Dates: end: 20191010
  6. TAXOTERE [Concomitant]
     Active Substance: DOCETAXEL
     Indication: Product used for unknown indication
     Dosage: UNK
     Route: 065
  7. ARIMIDEX [Concomitant]
     Active Substance: ANASTROZOLE
     Indication: Product used for unknown indication
     Dosage: UNK
     Route: 065
  8. CAROL [Concomitant]
     Indication: Product used for unknown indication
     Dosage: UNK
     Route: 065
  9. ALLOPURINOL [Concomitant]
     Active Substance: ALLOPURINOL
     Indication: Product used for unknown indication
     Dosage: 100 MG (1 TAB), QD
     Route: 048
  10. AMLODIPINE [Concomitant]
     Active Substance: AMLODIPINE BESYLATE
     Indication: Product used for unknown indication
     Dosage: 5 MG (1 TABS), QD
     Route: 048
  11. ASPIRIN [Concomitant]
     Active Substance: ASPIRIN
     Indication: Product used for unknown indication
     Dosage: 81 MG (1 TABS), QHS
     Route: 048
  12. BASAGLAR [Concomitant]
     Active Substance: INSULIN GLARGINE
     Indication: Product used for unknown indication
     Dosage: 100 UNITS/ML
     Route: 058
  13. BENTYL [Concomitant]
     Active Substance: DICYCLOMINE HYDROCHLORIDE
     Indication: Product used for unknown indication
     Dosage: 20 MG, QD
     Route: 048
  14. BISOPROLOL [Concomitant]
     Active Substance: BISOPROLOL
     Indication: Product used for unknown indication
     Dosage: 10 MG, QD
     Route: 048
  15. BISOPROLOL [Concomitant]
     Active Substance: BISOPROLOL
     Dosage: 0.5 MG (TABS), (15 TABS), (0 REFILL) QD
     Route: 048
     Dates: start: 20210428, end: 20210502
  16. BISOPROLOL [Concomitant]
     Active Substance: BISOPROLOL
     Dosage: 2.5 MG (0.5 TABS), QD
     Route: 048
  17. CLOPIDOGREL [Concomitant]
     Active Substance: CLOPIDOGREL BISULFATE
     Indication: Product used for unknown indication
     Dosage: 75 MG (1 TABS), QD
     Route: 048
  18. DULOXETINE [Concomitant]
     Active Substance: DULOXETINE
     Indication: Product used for unknown indication
     Dosage: 40 MG (2 CAPS), QD
     Route: 048
  19. FEXOFENADINE [Concomitant]
     Active Substance: FEXOFENADINE HYDROCHLORIDE
     Indication: Product used for unknown indication
     Dosage: 180 MG, QD
     Route: 048
  20. FLEXERIL [Concomitant]
     Active Substance: CYCLOBENZAPRINE HYDROCHLORIDE
     Indication: Product used for unknown indication
     Dosage: 10 MG(1 TABS), BID, PRN
     Route: 048
  21. LOMOTIL [Concomitant]
     Active Substance: ATROPINE SULFATE\DIPHENOXYLATE HYDROCHLORIDE
     Indication: Product used for unknown indication
     Dosage: 0.025 MG (1 TABS), QID, PRN
     Route: 048
  22. LORAZEPAM [Concomitant]
     Active Substance: LORAZEPAM
     Indication: Product used for unknown indication
     Dosage: 0.5 MG (0.5 TABS), BID, PRN
     Route: 048
  23. LOSARTAN [Concomitant]
     Active Substance: LOSARTAN
     Indication: Product used for unknown indication
     Dosage: 100 MG, QD
     Route: 048
  24. LOSARTAN [Concomitant]
     Active Substance: LOSARTAN
     Dosage: 50 MG(0.5 TABS), BID
     Route: 048
  25. MONTELUKAST [Concomitant]
     Active Substance: MONTELUKAST SODIUM
     Indication: Product used for unknown indication
     Dosage: 10 MG (1 TABS), QHS
     Route: 048
  26. NORCO [Concomitant]
     Active Substance: ACETAMINOPHEN\HYDROCODONE BITARTRATE
     Indication: Product used for unknown indication
     Dosage: 325 MG (1 TABS), Q6H, PRN
     Route: 048
  27. OMEPRAZOLE [Concomitant]
     Active Substance: OMEPRAZOLE
     Indication: Product used for unknown indication
     Dosage: 20 MG (1 CAPS), QD
     Route: 048
  28. PROMETHAZINE [Concomitant]
     Active Substance: PROMETHAZINE HYDROCHLORIDE
     Indication: Product used for unknown indication
     Dosage: 25 MG (1 TABS), BID, PRN
     Route: 048
  29. SPIRONOLACTONE [Concomitant]
     Active Substance: SPIRONOLACTONE
     Indication: Product used for unknown indication
     Dosage: 25 MG (1 TABS), QD
     Route: 048
  30. SPIRONOLACTONE [Concomitant]
     Active Substance: SPIRONOLACTONE
     Dosage: 25 MG (1 TABS), EVERY OTHER DAY
     Route: 048
  31. ACETAMINOPHEN [Concomitant]
     Active Substance: ACETAMINOPHEN
     Indication: Product used for unknown indication
     Dosage: 2 TABS, Q4H
     Route: 048
     Dates: start: 20210428, end: 20210502
  32. ACETAMINOPHEN [Concomitant]
     Active Substance: ACETAMINOPHEN
     Dosage: 650 MG (2 TABS), Q4H, PRN
     Route: 048
  33. FUROSEMIDE [Concomitant]
     Active Substance: FUROSEMIDE
     Indication: Product used for unknown indication
     Dosage: 1 TABS, QD
     Route: 048
     Dates: start: 20210428, end: 20210502
  34. HEPARIN [Concomitant]
     Active Substance: HEPARIN SODIUM
     Indication: Product used for unknown indication
     Dosage: 5 ML, (IV PUSH, ONE TIME) , (ROUTINE)
     Route: 065
     Dates: start: 20210502, end: 20210701
  35. LACTOBACILLUS ACIDOPHILUS [Concomitant]
     Active Substance: LACTOBACILLUS ACIDOPHILUS
     Indication: Product used for unknown indication
     Dosage: 1 CAPS, TID (MEALS)
     Route: 048
  36. KLOR-CON [Concomitant]
     Active Substance: POTASSIUM CHLORIDE
     Indication: Product used for unknown indication
     Dosage: 20 MEQ (1TABS), QD
     Route: 048
  37. LASIX [Concomitant]
     Active Substance: FUROSEMIDE
     Indication: Product used for unknown indication
     Dosage: 20 MG (1 TABS), QD
     Route: 048
  38. NITROGLYCERIN [Concomitant]
     Active Substance: NITROGLYCERIN
     Indication: Product used for unknown indication
     Dosage: 0.4 MG (1 TABS), Q5MIN, PRN
     Route: 060
  39. RANOLAZINE [Concomitant]
     Active Substance: RANOLAZINE
     Indication: Product used for unknown indication
     Dosage: 500 MG (1 TABS), BID
     Route: 048

REACTIONS (12)
  - Myocardial infarction [Unknown]
  - Renal cancer [Recovered/Resolved]
  - Malignant neoplasm progression [Recovered/Resolved]
  - Bradycardia [Unknown]
  - Diarrhoea [Unknown]
  - Chest pain [Unknown]
  - Illness [Unknown]
  - Atrioventricular block first degree [Unknown]
  - Bundle branch block left [Unknown]
  - Musculoskeletal disorder [Unknown]
  - Hypotension [Unknown]
  - Muscle mass [Unknown]

NARRATIVE: CASE EVENT DATE: 20200901
